FAERS Safety Report 8160857-8 (Version None)
Quarter: 2012Q1

REPORT INFORMATION
  Report Type: 
  Country: None (occurrence: None)
  Receive Date: 20120223
  Receipt Date: 20120221
  Transmission Date: 20120608
  Serious: Yes (Death, Hospitalization)
  Sender: FDA-Public Use
  Company Number: PHHY2012AU011549

PATIENT
  Sex: Female

DRUGS (17)
  1. ASPIRIN [Concomitant]
     Dosage: 100 MG, IN THE MORNING
     Route: 048
  2. NEXIUM [Concomitant]
     Dosage: 20 MG, DAILY
     Route: 048
  3. NITROLINGUAL [Concomitant]
     Dosage: 400 UG, PRN
     Route: 060
  4. TEMAZEPAM [Concomitant]
     Dosage: 10 MG, PRN AT NIGHT
     Route: 048
  5. ZOLOFT [Concomitant]
     Dosage: 100 MG, DAILY
     Route: 048
  6. CARVEDILOL [Concomitant]
     Dosage: 6.25 MG, IN THE MORNING
     Route: 048
  7. IMDUR [Concomitant]
     Dosage: 60 MG, 1/2 TABLET IN THE MORNING
     Route: 048
  8. SIMVASTATIN [Concomitant]
     Dosage: 20 MG, IN THE NIGHT
     Route: 048
  9. ACETAMINOPHEN [Concomitant]
     Dosage: 665 MG, PRN, AT BED TIME
     Route: 048
  10. CALCIFEROL [Concomitant]
     Dosage: 1000 U,IN THE MORNING
     Route: 048
  11. KALTOSTAT [Concomitant]
     Dosage: UNK UKN, UNK
  12. ZOLEDRONOC ACID [Suspect]
     Dosage: 5 MG, UNK
     Route: 042
  13. ZOLEDRONOC ACID [Suspect]
     Dosage: 5 MG, UNK
     Route: 042
     Dates: start: 20110324
  14. ZOLEDRONOC ACID [Suspect]
     Dosage: 5 MG, UNK
     Route: 042
  15. IMODIUM [Concomitant]
     Dosage: 2 MG, PRN, DAILY IN THE MORNING
     Route: 048
  16. FUROSEMIDE [Concomitant]
     Dosage: 40 MG, IN THE MORNING
     Route: 048
  17. NASONEX [Concomitant]
     Dosage: 50 UG, 1 SPRAY AT BED TIME

REACTIONS (2)
  - DEATH [None]
  - CHEST PAIN [None]
